FAERS Safety Report 6055390-3 (Version None)
Quarter: 2009Q1

REPORT INFORMATION
  Report Type: 
  Country: None (occurrence: None)
  Receive Date: 20090128
  Receipt Date: 20090126
  Transmission Date: 20090719
  Serious: Yes (Hospitalization)
  Sender: FDA-Public Use
  Company Number: CA-JNJFOC-20080803296

PATIENT
  Age: 17 Year
  Sex: Male

DRUGS (2)
  1. CONCERTA [Suspect]
     Dates: start: 20071001
  2. CONCERTA [Suspect]
     Indication: ATTENTION DEFICIT/HYPERACTIVITY DISORDER
     Dates: start: 20071001

REACTIONS (5)
  - CATATONIA [None]
  - DYSKINESIA [None]
  - EATING DISORDER [None]
  - FEELING ABNORMAL [None]
  - WEIGHT DECREASED [None]
